FAERS Safety Report 4972725-0 (Version None)
Quarter: 2006Q1

REPORT INFORMATION
  Report Type: 
  Country: None (occurrence: None)
  Receive Date: 20060215
  Receipt Date: 20051221
  Transmission Date: 20060701
  Serious: No
  Sender: FDA-Public Use
  Company Number: US200512003760

PATIENT
  Age: 58 Year
  Sex: Male

DRUGS (2)
  1. CIALIS [Suspect]
     Indication: ERECTILE DYSFUNCTION
     Dosage: 10 MG, AS NEEDED
     Dates: start: 20051101
  2. MULTIVITAMINS (ASCORBIC ACID, ERGOCALCIFEROL, FOLIC ACID, NICOTINAMIDE [Concomitant]

REACTIONS (2)
  - NASAL CONGESTION [None]
  - THERAPEUTIC RESPONSE DECREASED [None]
